FAERS Safety Report 4733276-1 (Version None)
Quarter: 2005Q3

REPORT INFORMATION
  Report Type: 
  Country: None (occurrence: None)
  Receive Date: 20050803
  Receipt Date: 20050722
  Transmission Date: 20060218
  Serious: Yes (Hospitalization)
  Sender: FDA-Public Use
  Company Number: NA-BRISTOL-MYERS SQUIBB COMPANY-13048665

PATIENT
  Age: 34 Year
  Sex: Female

DRUGS (3)
  1. STAVUDINE [Suspect]
     Indication: HIV INFECTION
     Route: 048
     Dates: start: 20050601
  2. LAMIVUDINE [Suspect]
     Indication: HIV INFECTION
     Route: 048
     Dates: start: 20050601
  3. NEVIRAPINE [Suspect]
     Indication: HIV INFECTION
     Route: 048
     Dates: start: 20050601

REACTIONS (2)
  - GASTRITIS [None]
  - UPPER RESPIRATORY TRACT INFECTION [None]
